FAERS Safety Report 7434503-2 (Version None)
Quarter: 2011Q2

REPORT INFORMATION
  Report Type: 
  Country: None (occurrence: None)
  Receive Date: 20110425
  Receipt Date: 20110415
  Transmission Date: 20111010
  Serious: Yes (Death, Life-Threatening)
  Sender: FDA-Public Use
  Company Number: JP-JNJFOC-20110408824

PATIENT
  Sex: Male

DRUGS (14)
  1. BAKTAR [Concomitant]
     Indication: EPILEPSY
     Dosage: DOSE- 2DF
     Route: 048
  2. ALEVIATIN [Concomitant]
     Indication: EPILEPSY
     Route: 048
  3. PHENOBARBITAL [Concomitant]
     Indication: EPILEPSY
     Route: 048
  4. LANDSEN [Concomitant]
     Indication: EPILEPSY
     Route: 048
  5. PHENOBAL [Concomitant]
     Indication: EPILEPSY
     Route: 042
  6. DEPAKENE [Concomitant]
     Indication: EPILEPSY
     Route: 048
  7. ALLEGRA [Concomitant]
     Indication: EPILEPSY
     Route: 048
  8. WAKOBITAL [Concomitant]
     Indication: EPILEPSY
     Route: 051
  9. TOPIRAMATE [Suspect]
     Indication: EPILEPSY
     Route: 048
  10. BONALON [Concomitant]
     Indication: EPILEPSY
     Route: 048
  11. TOPIRAMATE [Suspect]
     Route: 048
  12. DIAZEPAM [Concomitant]
     Indication: EPILEPSY
     Route: 042
  13. LUPIAL [Concomitant]
     Indication: EPILEPSY
     Route: 051
  14. LEDERCORT D [Concomitant]
     Indication: EPILEPSY
     Route: 048

REACTIONS (3)
  - DECREASED APPETITE [None]
  - INFECTION SUSCEPTIBILITY INCREASED [None]
  - SEPSIS [None]
